FAERS Safety Report 4928367-6 (Version None)
Quarter: 2006Q1

REPORT INFORMATION
  Report Type: 
  Country: None (occurrence: None)
  Receive Date: 20060223
  Receipt Date: 20060215
  Transmission Date: 20060701
  Serious: Yes (Hospitalization, Other)
  Sender: FDA-Public Use
  Company Number: 200510669BYL

PATIENT
  Age: 64 Year
  Sex: Male
  Weight: 43 kg

DRUGS (9)
  1. ADALAT [Suspect]
     Dosage: 20 MG, QD, ORAL
     Route: 048
     Dates: start: 20051107, end: 20051215
  2. ADALAT [Suspect]
     Dosage: 5 MG, PRN, ORAL
     Route: 048
     Dates: start: 20051002, end: 20051129
  3. ADALAT [Suspect]
     Dosage: 5 MG, PRN, ORAL
     Route: 048
     Dates: start: 20051221
  4. LANSOPRAZOLE [Concomitant]
  5. ALFAROL [Concomitant]
  6. ISONIAZID [Concomitant]
  7. RIFAMPICIN [Concomitant]
  8. PYRAZINAMIDE [Concomitant]
  9. STREPTOMYCIN SULFATE [Concomitant]

REACTIONS (2)
  - EOSINOPHIL COUNT INCREASED [None]
  - SKIN EXFOLIATION [None]
